FAERS Safety Report 6306065-4 (Version None)
Quarter: 2009Q3

REPORT INFORMATION
  Report Type: 
  Country: None (occurrence: None)
  Receive Date: 20090810
  Receipt Date: 20090804
  Transmission Date: 20100115
  Serious: Yes (Life-Threatening, Other)
  Sender: FDA-Public Use
  Company Number: 09US002984

PATIENT
  Age: 7 Year
  Sex: Male

DRUGS (1)
  1. IBUPROFEN 100MG JR GRAPE CHEWABLE 521 [Suspect]
     Indication: DRUG USE FOR UNKNOWN INDICATION
     Dosage: ORAL
     Route: 002

REACTIONS (1)
  - ANAPHYLACTIC REACTION [None]
